FAERS Safety Report 21280073 (Version 26)
Quarter: 2024Q4

REPORT INFORMATION
  Report Type: Report from Study
  Country: CO (occurrence: CO)
  Receive Date: 20220901
  Receipt Date: 20241202
  Transmission Date: 20250115
  Serious: Yes (Life-Threatening, Hospitalization, Other)
  Sender: TAKEDA
  Company Number: CO-TAKEDA-CO202016083

PATIENT
  Age: 9 Year
  Sex: Male
  Weight: 50 kg

DRUGS (15)
  1. ICATIBANT [Suspect]
     Active Substance: ICATIBANT ACETATE
     Indication: Hereditary angioedema
     Dosage: 15 MILLIGRAM, Q6HR
     Dates: start: 20200508
  2. ICATIBANT [Suspect]
     Active Substance: ICATIBANT ACETATE
     Dosage: 15 MILLIGRAM
     Dates: start: 20200523, end: 20200523
  3. ICATIBANT [Suspect]
     Active Substance: ICATIBANT ACETATE
     Dosage: 15 MILLIGRAM
  4. ICATIBANT [Suspect]
     Active Substance: ICATIBANT ACETATE
     Dosage: 1 DOSAGE FORM
  5. ICATIBANT [Suspect]
     Active Substance: ICATIBANT ACETATE
     Dosage: 30 MILLIGRAM
  6. ICATIBANT [Suspect]
     Active Substance: ICATIBANT ACETATE
     Dosage: 1 DOSAGE FORM
  7. ICATIBANT [Suspect]
     Active Substance: ICATIBANT ACETATE
     Dosage: 30 MILLIGRAM
  8. ICATIBANT [Suspect]
     Active Substance: ICATIBANT ACETATE
     Dosage: 30 MILLIGRAM
  9. ICATIBANT [Suspect]
     Active Substance: ICATIBANT ACETATE
     Dosage: 20 MILLIGRAM
  10. ICATIBANT [Suspect]
     Active Substance: ICATIBANT ACETATE
     Dosage: UNK
  11. TAKHZYRO [Suspect]
     Active Substance: LANADELUMAB-FLYO
     Indication: Hereditary angioedema
     Dosage: 300 MILLIGRAM, 2/MONTH
     Dates: start: 20230913
  12. TAKHZYRO [Suspect]
     Active Substance: LANADELUMAB-FLYO
     Dosage: 1 DOSAGE FORM, 2/MONTH
  13. TAKHZYRO [Suspect]
     Active Substance: LANADELUMAB-FLYO
     Dosage: 300 MILLIGRAM, 2/MONTH
  14. TAKHZYRO [Suspect]
     Active Substance: LANADELUMAB-FLYO
     Dosage: 300 MILLIGRAM, Q2WEEKS
  15. TAKHZYRO [Suspect]
     Active Substance: LANADELUMAB-FLYO
     Dosage: 300 MILLIGRAM, Q2WEEKS

REACTIONS (24)
  - Hereditary angioedema [Recovered/Resolved]
  - Asphyxia [Recovering/Resolving]
  - Chest pain [Unknown]
  - Arrhythmia [Unknown]
  - Pneumonia [Recovering/Resolving]
  - Pallor [Recovered/Resolved]
  - Crying [Recovered/Resolved]
  - Weight increased [Unknown]
  - Tachycardia [Unknown]
  - Body height increased [Unknown]
  - Treatment noncompliance [Unknown]
  - Gastric pH decreased [Recovered/Resolved]
  - Decreased appetite [Recovered/Resolved]
  - Product prescribing error [Unknown]
  - Product availability issue [Unknown]
  - Abdominal pain [Unknown]
  - Rash [Unknown]
  - Urticaria [Recovered/Resolved]
  - Headache [Recovered/Resolved]
  - Dizziness [Recovered/Resolved]
  - Incorrect dose administered [Unknown]
  - Sensory disturbance [Recovered/Resolved]
  - Product use issue [Unknown]
  - Product use in unapproved indication [Unknown]

NARRATIVE: CASE EVENT DATE: 20200721
